FAERS Safety Report 6687418-1 (Version None)
Quarter: 2010Q2

REPORT INFORMATION
  Report Type: 
  Country: None (occurrence: None)
  Receive Date: 20100415
  Receipt Date: 20100409
  Transmission Date: 20101027
  Serious: Yes (Other)
  Sender: FDA-Public Use
  Company Number: DE-1180832

PATIENT
  Age: 76 Year
  Sex: Male

DRUGS (8)
  1. AZOPT [Suspect]
     Indication: GLAUCOMA
     Dosage: 1 GTT BID OU OPHTHALMIC
     Route: 047
     Dates: start: 20051101
  2. MARCUMAR [Concomitant]
  3. SIMVASTATIN [Concomitant]
  4. BISOPROLOL FUMARATE [Concomitant]
  5. LEVOTHYROXINE SODIUM [Concomitant]
  6. IRBESARTAN + HYDROCHLOROTHIAZIDE [Concomitant]
  7. IVABRADINE (IVABRADINE) [Concomitant]
  8. TAMSULOSIN HCL [Concomitant]

REACTIONS (1)
  - BRONCHIAL HYPERREACTIVITY [None]
